FAERS Safety Report 8803293 (Version 3)
Quarter: 2012Q4

REPORT INFORMATION
  Report Type: 
  Country: DE (occurrence: DE)
  Receive Date: 20120924
  Receipt Date: 20121026
  Transmission Date: 20130627
  Serious: Yes (Death, Hospitalization)
  Sender: FDA-Public Use
  Company Number: PHHY2012DE082003

PATIENT
  Sex: Male
  Weight: 60 kg

DRUGS (2)
  1. GLIVEC [Suspect]
     Indication: CHRONIC MYELOID LEUKAEMIA
     Dosage: 400 mg QD
     Route: 048
     Dates: start: 20050105, end: 20090930
  2. DASATINIB [Suspect]
     Indication: CHRONIC MYELOID LEUKAEMIA
     Dosage: 100 mg, QD
     Route: 048
     Dates: start: 20090930, end: 20100325

REACTIONS (3)
  - Anaemia [Fatal]
  - Chronic myeloid leukaemia [Recovering/Resolving]
  - Gastrointestinal haemorrhage [Recovered/Resolved]
